FAERS Safety Report 25119801 (Version 4)
Quarter: 2025Q2

REPORT INFORMATION
  Report Type: Spontaneous
  Country: JP (occurrence: JP)
  Receive Date: 20250325
  Receipt Date: 20250618
  Transmission Date: 20250717
  Serious: Yes (Hospitalization, Other)
  Sender: ASTELLAS
  Company Number: JP-ASTELLAS-2025-AER-015743

PATIENT
  Age: 77 Year
  Sex: Male
  Weight: 53 kg

DRUGS (9)
  1. PADCEV [Suspect]
     Active Substance: ENFORTUMAB VEDOTIN-EJFV
     Indication: Bladder cancer
     Route: 042
     Dates: start: 20250106, end: 20250225
  2. KEYTRUDA [Suspect]
     Active Substance: PEMBROLIZUMAB
     Indication: Bladder cancer
     Route: 042
     Dates: start: 20250106, end: 20250218
  3. CALONAL [Concomitant]
     Active Substance: ACETAMINOPHEN
     Indication: Bladder cancer
     Route: 048
  4. ASPIRIN\LANSOPRAZOLE [Concomitant]
     Active Substance: ASPIRIN\LANSOPRAZOLE
     Indication: Carotid artery stenosis
     Route: 048
  5. ROSUVASTATIN [Concomitant]
     Active Substance: ROSUVASTATIN
     Indication: Carotid artery stenosis
     Route: 048
  6. CETIRIZINE [Concomitant]
     Active Substance: CETIRIZINE HYDROCHLORIDE
     Indication: Seasonal allergy
     Route: 048
  7. CEFEPIME [Concomitant]
     Active Substance: CEFEPIME HYDROCHLORIDE
     Indication: Pyrexia
     Route: 065
     Dates: start: 20250314
  8. MIROGABALIN BESYLATE [Concomitant]
     Active Substance: MIROGABALIN BESYLATE
     Indication: Guillain-Barre syndrome
     Route: 048
     Dates: start: 20250314
  9. METHYLCOBALAMIN [Concomitant]
     Active Substance: METHYLCOBALAMIN
     Indication: Guillain-Barre syndrome
     Route: 048
     Dates: start: 20250314

REACTIONS (4)
  - Guillain-Barre syndrome [Recovered/Resolved with Sequelae]
  - Hyponatraemia [Recovered/Resolved]
  - Pyrexia [Recovered/Resolved]
  - Urinary retention [Not Recovered/Not Resolved]

NARRATIVE: CASE EVENT DATE: 20250311
